FAERS Safety Report 17677389 (Version 1)
Quarter: 2020Q2

REPORT INFORMATION
  Report Type: Spontaneous
  Country: CA (occurrence: CA)
  Receive Date: 20200416
  Receipt Date: 20200416
  Transmission Date: 20200714
  Serious: Yes (Other)
  Sender: FDA-Public Use
  Company Number: NVSC2020CA102932

PATIENT
  Age: 10 Year
  Sex: Male
  Weight: 36 kg

DRUGS (2)
  1. JADENU [Suspect]
     Active Substance: DEFERASIROX
     Dosage: 810 MG, QD
     Route: 048
  2. JADENU [Suspect]
     Active Substance: DEFERASIROX
     Indication: FANCONI SYNDROME
     Dosage: 810 MG, QD
     Route: 048

REACTIONS (3)
  - International normalised ratio increased [Recovered/Resolved]
  - Hepatic enzyme increased [Recovered/Resolved]
  - Blood creatinine increased [Recovered/Resolved]
